FAERS Safety Report 13743918 (Version 2)
Quarter: 2017Q3

REPORT INFORMATION
  Report Type: Spontaneous
  Country: AU (occurrence: AU)
  Receive Date: 20170712
  Receipt Date: 20170717
  Transmission Date: 20171127
  Serious: Yes (Other)
  Sender: FDA-Public Use
  Company Number: AU-ABBVIE-17P-008-2032814-00

PATIENT
  Age: 64 Year
  Sex: Male

DRUGS (1)
  1. DUODOPA [Suspect]
     Active Substance: CARBIDOPA\LEVODOPA
     Indication: PARKINSON^S DISEASE
     Dosage: 24 HOUR
     Route: 050

REACTIONS (8)
  - Peripheral sensory neuropathy [Unknown]
  - Confusional state [Unknown]
  - Device breakage [Unknown]
  - Vitamin B12 decreased [Recovered/Resolved]
  - Poor quality sleep [Recovering/Resolving]
  - On and off phenomenon [Unknown]
  - Hallucination [Recovered/Resolved]
  - Somnolence [Recovering/Resolving]
